FAERS Safety Report 4292360-X (Version None)
Quarter: 2004Q1

REPORT INFORMATION
  Report Type: 
  Country: None (occurrence: None)
  Receive Date: 20040126
  Receipt Date: 20031009
  Transmission Date: 20041129
  Serious: No
  Sender: FDA-Public Use
  Company Number: USA031049460

PATIENT
  Age: 55 Year
  Sex: Female

DRUGS (1)
  1. FORTEO [Suspect]
     Dosage: 20UG/ AT NOON
     Dates: start: 20031006

REACTIONS (3)
  - ASTHENIA [None]
  - DIZZINESS [None]
  - FATIGUE [None]
